FAERS Safety Report 7483444-3 (Version None)
Quarter: 2011Q2

REPORT INFORMATION
  Report Type: 
  Country: None (occurrence: None)
  Receive Date: 20110512
  Receipt Date: 20110512
  Transmission Date: 20111010
  Serious: Yes (Life-Threatening)
  Sender: FDA-Public Use
  Company Number: None

PATIENT
  Age: 49 Year
  Sex: Female

DRUGS (1)
  1. ZELNORM [Suspect]
     Route: 048
     Dates: start: 20031001, end: 20051001

REACTIONS (4)
  - DRUG INEFFECTIVE [None]
  - ABDOMINAL DISTENSION [None]
  - SUBCUTANEOUS ABSCESS [None]
  - BREAST CANCER FEMALE [None]
